FAERS Safety Report 15703439 (Version 1)
Quarter: 2018Q4

REPORT INFORMATION
  Report Type: Spontaneous
  Country: US (occurrence: US)
  Receive Date: 20181209
  Receipt Date: 20181209
  Transmission Date: 20190205
  Serious: Yes (Disabling)
  Sender: FDA-Public Use
  Company Number: None

PATIENT
  Age: 32 Year
  Sex: Female
  Weight: 56.25 kg

DRUGS (1)
  1. ESCITALOPRAM 5 MG SUBSTITUTE FOR LEXAPRO 5. MG TABLET [Suspect]
     Active Substance: ESCITALOPRAM OXALATE
     Indication: ANXIETY
     Dosage: ?          QUANTITY:1 TABLET(S);?
     Route: 048
     Dates: start: 20181203, end: 20181206

REACTIONS (12)
  - Paraesthesia [None]
  - Cold sweat [None]
  - Hyperhidrosis [None]
  - Chills [None]
  - Tremor [None]
  - Hypoaesthesia [None]
  - Withdrawal syndrome [None]
  - Skin burning sensation [None]
  - Nausea [None]
  - Anorgasmia [None]
  - Headache [None]
  - Sexual dysfunction [None]

NARRATIVE: CASE EVENT DATE: 20181206
